FAERS Safety Report 6202177-4 (Version None)
Quarter: 2009Q2

REPORT INFORMATION
  Report Type: 
  Country: None (occurrence: None)
  Receive Date: 20090520
  Receipt Date: 20090507
  Transmission Date: 20091009
  Serious: Yes (Other)
  Sender: FDA-Public Use
  Company Number: 232076K08USA

PATIENT
  Age: 53 Year
  Sex: Female

DRUGS (9)
  1. REBIF [Suspect]
     Indication: MULTIPLE SCLEROSIS
     Dosage: 44 MCG, 3 IN 1 WEEKS, SUBCUTANEOUS; 22 MCG; 44 MCG
     Dates: start: 20080801, end: 20080101
  2. REBIF [Suspect]
     Indication: MULTIPLE SCLEROSIS
     Dosage: 44 MCG, 3 IN 1 WEEKS, SUBCUTANEOUS; 22 MCG; 44 MCG
     Dates: start: 20080101, end: 20090401
  3. REBIF [Suspect]
     Indication: MULTIPLE SCLEROSIS
     Dosage: 44 MCG, 3 IN 1 WEEKS, SUBCUTANEOUS; 22 MCG; 44 MCG
     Dates: start: 20090401
  4. ACYCLOVIR [Concomitant]
  5. PROVIGIL [Concomitant]
  6. MOBIC [Concomitant]
  7. LEXAPRO [Concomitant]
  8. ADVAIR HFA [Concomitant]
  9. NEURONTIN [Concomitant]

REACTIONS (5)
  - DIZZINESS [None]
  - MULTIPLE SCLEROSIS RELAPSE [None]
  - NAUSEA [None]
  - OCULAR ICTERUS [None]
  - TYPE 2 DIABETES MELLITUS [None]
